FAERS Safety Report 21621378 (Version 3)
Quarter: 2025Q3

REPORT INFORMATION
  Report Type: Spontaneous
  Country: CA (occurrence: CA)
  Receive Date: 20221121
  Receipt Date: 20250909
  Transmission Date: 20251021
  Serious: Yes (Hospitalization, Other)
  Sender: MYLAN
  Company Number: CA-MYLANLABS-2022M1126020

PATIENT
  Age: 41 Year
  Sex: Female

DRUGS (88)
  1. EPIPEN [Suspect]
     Active Substance: EPINEPHRINE
     Indication: Product used for unknown indication
     Dosage: UNK, BID (2 EVERY 1 DAYS)
  2. EPIPEN [Suspect]
     Active Substance: EPINEPHRINE
     Dosage: UNK, BID (2 EVERY 1 DAYS)
     Route: 030
  3. EPIPEN [Suspect]
     Active Substance: EPINEPHRINE
     Dosage: UNK, BID (2 EVERY 1 DAYS)
     Route: 030
  4. EPIPEN [Suspect]
     Active Substance: EPINEPHRINE
     Dosage: UNK, BID (2 EVERY 1 DAYS)
  5. EPINEPHRINE [Suspect]
     Active Substance: EPINEPHRINE
     Indication: Product used for unknown indication
     Dosage: UNK, QD (1 EVERY 1 DAYS)
  6. EPINEPHRINE [Suspect]
     Active Substance: EPINEPHRINE
     Dosage: UNK, QD (1 EVERY 1 DAYS)
     Route: 065
  7. EPINEPHRINE [Suspect]
     Active Substance: EPINEPHRINE
     Dosage: UNK, QD (1 EVERY 1 DAYS)
     Route: 065
  8. EPINEPHRINE [Suspect]
     Active Substance: EPINEPHRINE
     Dosage: UNK, QD (1 EVERY 1 DAYS)
  9. OMALIZUMAB [Suspect]
     Active Substance: OMALIZUMAB
     Indication: Chronic spontaneous urticaria
     Route: 058
  10. OMALIZUMAB [Suspect]
     Active Substance: OMALIZUMAB
  11. OMALIZUMAB [Suspect]
     Active Substance: OMALIZUMAB
  12. OMALIZUMAB [Suspect]
     Active Substance: OMALIZUMAB
     Route: 058
  13. OMALIZUMAB [Suspect]
     Active Substance: OMALIZUMAB
     Dosage: 300 MILLIGRAM 1 EVERY 2 WEEK
     Route: 058
  14. OMALIZUMAB [Suspect]
     Active Substance: OMALIZUMAB
     Dosage: 300 MILLIGRAM 1 EVERY 2 WEEK
  15. OMALIZUMAB [Suspect]
     Active Substance: OMALIZUMAB
     Dosage: 300 MILLIGRAM 1 EVERY 2 WEEK
  16. OMALIZUMAB [Suspect]
     Active Substance: OMALIZUMAB
     Dosage: 300 MILLIGRAM 1 EVERY 2 WEEK
     Route: 058
  17. OMALIZUMAB [Suspect]
     Active Substance: OMALIZUMAB
     Indication: Chronic spontaneous urticaria
     Dosage: 300 MILLIGRAM, Q2W
  18. OMALIZUMAB [Suspect]
     Active Substance: OMALIZUMAB
     Dosage: 300 MILLIGRAM, Q2W
     Route: 058
  19. OMALIZUMAB [Suspect]
     Active Substance: OMALIZUMAB
     Dosage: 300 MILLIGRAM, Q2W
     Route: 058
  20. OMALIZUMAB [Suspect]
     Active Substance: OMALIZUMAB
     Dosage: 300 MILLIGRAM, Q2W
  21. OMALIZUMAB [Suspect]
     Active Substance: OMALIZUMAB
     Indication: Chronic spontaneous urticaria
     Dosage: 300 MILLIGRAM, Q2W
     Route: 058
  22. OMALIZUMAB [Suspect]
     Active Substance: OMALIZUMAB
     Dosage: 300 MILLIGRAM, Q2W
  23. OMALIZUMAB [Suspect]
     Active Substance: OMALIZUMAB
     Dosage: 300 MILLIGRAM, Q2W
  24. OMALIZUMAB [Suspect]
     Active Substance: OMALIZUMAB
     Dosage: 300 MILLIGRAM, Q2W
     Route: 058
  25. OMALIZUMAB [Suspect]
     Active Substance: OMALIZUMAB
     Route: 058
  26. OMALIZUMAB [Suspect]
     Active Substance: OMALIZUMAB
  27. OMALIZUMAB [Suspect]
     Active Substance: OMALIZUMAB
  28. OMALIZUMAB [Suspect]
     Active Substance: OMALIZUMAB
     Route: 058
  29. TYLENOL [Suspect]
     Active Substance: ACETAMINOPHEN
     Indication: Product used for unknown indication
  30. TYLENOL [Suspect]
     Active Substance: ACETAMINOPHEN
     Route: 065
  31. TYLENOL [Suspect]
     Active Substance: ACETAMINOPHEN
     Route: 065
  32. TYLENOL [Suspect]
     Active Substance: ACETAMINOPHEN
  33. ACRIVASTINE [Concomitant]
     Active Substance: ACRIVASTINE
     Indication: Product used for unknown indication
  34. ACRIVASTINE [Concomitant]
     Active Substance: ACRIVASTINE
     Route: 048
  35. ACRIVASTINE [Concomitant]
     Active Substance: ACRIVASTINE
     Route: 048
  36. ACRIVASTINE [Concomitant]
     Active Substance: ACRIVASTINE
  37. ADVIL [Concomitant]
     Active Substance: IBUPROFEN
     Indication: Product used for unknown indication
  38. ADVIL [Concomitant]
     Active Substance: IBUPROFEN
     Route: 048
  39. ADVIL [Concomitant]
     Active Substance: IBUPROFEN
     Route: 048
  40. ADVIL [Concomitant]
     Active Substance: IBUPROFEN
  41. MAXALT [Concomitant]
     Active Substance: RIZATRIPTAN BENZOATE
     Indication: Product used for unknown indication
  42. MAXALT [Concomitant]
     Active Substance: RIZATRIPTAN BENZOATE
     Route: 048
  43. MAXALT [Concomitant]
     Active Substance: RIZATRIPTAN BENZOATE
     Route: 048
  44. MAXALT [Concomitant]
     Active Substance: RIZATRIPTAN BENZOATE
  45. MEDROL [Concomitant]
     Active Substance: METHYLPREDNISOLONE
     Indication: Product used for unknown indication
  46. MEDROL [Concomitant]
     Active Substance: METHYLPREDNISOLONE
     Route: 048
  47. MEDROL [Concomitant]
     Active Substance: METHYLPREDNISOLONE
     Route: 048
  48. MEDROL [Concomitant]
     Active Substance: METHYLPREDNISOLONE
  49. ONDANSETRON [Concomitant]
     Active Substance: ONDANSETRON
     Indication: Product used for unknown indication
  50. ONDANSETRON [Concomitant]
     Active Substance: ONDANSETRON
     Route: 048
  51. ONDANSETRON [Concomitant]
     Active Substance: ONDANSETRON
     Route: 048
  52. ONDANSETRON [Concomitant]
     Active Substance: ONDANSETRON
  53. TYLENOL [Concomitant]
     Active Substance: ACETAMINOPHEN
     Indication: Product used for unknown indication
  54. TYLENOL [Concomitant]
     Active Substance: ACETAMINOPHEN
     Route: 065
  55. TYLENOL [Concomitant]
     Active Substance: ACETAMINOPHEN
     Route: 065
  56. TYLENOL [Concomitant]
     Active Substance: ACETAMINOPHEN
  57. FAMOTIDINE [Concomitant]
     Active Substance: FAMOTIDINE
     Indication: Product used for unknown indication
  58. FAMOTIDINE [Concomitant]
     Active Substance: FAMOTIDINE
     Route: 065
  59. FAMOTIDINE [Concomitant]
     Active Substance: FAMOTIDINE
     Route: 065
  60. FAMOTIDINE [Concomitant]
     Active Substance: FAMOTIDINE
  61. KETOTIFEN [Concomitant]
     Active Substance: KETOTIFEN
     Indication: Product used for unknown indication
  62. KETOTIFEN [Concomitant]
     Active Substance: KETOTIFEN
     Route: 065
  63. KETOTIFEN [Concomitant]
     Active Substance: KETOTIFEN
     Route: 065
  64. KETOTIFEN [Concomitant]
     Active Substance: KETOTIFEN
  65. RIZATRIPTAN BENZOATE [Concomitant]
     Active Substance: RIZATRIPTAN BENZOATE
     Indication: Product used for unknown indication
  66. RIZATRIPTAN BENZOATE [Concomitant]
     Active Substance: RIZATRIPTAN BENZOATE
     Route: 065
  67. RIZATRIPTAN BENZOATE [Concomitant]
     Active Substance: RIZATRIPTAN BENZOATE
     Route: 065
  68. RIZATRIPTAN BENZOATE [Concomitant]
     Active Substance: RIZATRIPTAN BENZOATE
  69. ADVIL [Concomitant]
     Active Substance: IBUPROFEN
     Indication: Product used for unknown indication
  70. ADVIL [Concomitant]
     Active Substance: IBUPROFEN
     Route: 048
  71. ADVIL [Concomitant]
     Active Substance: IBUPROFEN
     Route: 048
  72. ADVIL [Concomitant]
     Active Substance: IBUPROFEN
  73. DICLOFENAC [Concomitant]
     Active Substance: DICLOFENAC
     Indication: Product used for unknown indication
  74. DICLOFENAC [Concomitant]
     Active Substance: DICLOFENAC
     Route: 065
  75. DICLOFENAC [Concomitant]
     Active Substance: DICLOFENAC
     Route: 065
  76. DICLOFENAC [Concomitant]
     Active Substance: DICLOFENAC
  77. DIPHENHYDRAMINE [Concomitant]
     Active Substance: DIPHENHYDRAMINE
     Indication: Product used for unknown indication
  78. DIPHENHYDRAMINE [Concomitant]
     Active Substance: DIPHENHYDRAMINE
     Route: 065
  79. DIPHENHYDRAMINE [Concomitant]
     Active Substance: DIPHENHYDRAMINE
     Route: 065
  80. DIPHENHYDRAMINE [Concomitant]
     Active Substance: DIPHENHYDRAMINE
  81. LORAZEPAM [Concomitant]
     Active Substance: LORAZEPAM
     Indication: Product used for unknown indication
  82. LORAZEPAM [Concomitant]
     Active Substance: LORAZEPAM
     Route: 065
  83. LORAZEPAM [Concomitant]
     Active Substance: LORAZEPAM
     Route: 065
  84. LORAZEPAM [Concomitant]
     Active Substance: LORAZEPAM
  85. MEDROL [Concomitant]
     Active Substance: METHYLPREDNISOLONE
     Indication: Product used for unknown indication
  86. MEDROL [Concomitant]
     Active Substance: METHYLPREDNISOLONE
     Route: 065
  87. MEDROL [Concomitant]
     Active Substance: METHYLPREDNISOLONE
     Route: 065
  88. MEDROL [Concomitant]
     Active Substance: METHYLPREDNISOLONE

REACTIONS (21)
  - Anaphylactic reaction [Not Recovered/Not Resolved]
  - Condition aggravated [Not Recovered/Not Resolved]
  - Hepatic enzyme increased [Not Recovered/Not Resolved]
  - Loss of consciousness [Not Recovered/Not Resolved]
  - Migraine [Not Recovered/Not Resolved]
  - Anxiety [Not Recovered/Not Resolved]
  - Blood pressure fluctuation [Not Recovered/Not Resolved]
  - Blood pressure increased [Not Recovered/Not Resolved]
  - Depression [Not Recovered/Not Resolved]
  - Frustration tolerance decreased [Not Recovered/Not Resolved]
  - General physical health deterioration [Not Recovered/Not Resolved]
  - Heart rate increased [Not Recovered/Not Resolved]
  - Hypersensitivity [Not Recovered/Not Resolved]
  - Hypotension [Not Recovered/Not Resolved]
  - Injection site rash [Not Recovered/Not Resolved]
  - Pruritus [Not Recovered/Not Resolved]
  - Rash [Not Recovered/Not Resolved]
  - Stress [Not Recovered/Not Resolved]
  - Urticaria [Not Recovered/Not Resolved]
  - Illness [Not Recovered/Not Resolved]
  - Inappropriate schedule of product administration [Not Recovered/Not Resolved]
